FAERS Safety Report 12482149 (Version 4)
Quarter: 2016Q3

REPORT INFORMATION
  Report Type: Spontaneous
  Country: US (occurrence: US)
  Receive Date: 20160620
  Receipt Date: 20160720
  Transmission Date: 20161109
  Serious: Yes (Other)
  Sender: FDA-Public Use
  Company Number: US-TEVA-668929USA

PATIENT
  Age: 29 Year
  Sex: Female
  Weight: 66.28 kg

DRUGS (1)
  1. ZECUITY [Suspect]
     Active Substance: SUMATRIPTAN SUCCINATE
     Indication: MIGRAINE
     Dosage: 6.5 MG OVER 4 HOURS
     Route: 062
     Dates: start: 20160610, end: 20160610

REACTIONS (9)
  - Application site paraesthesia [Unknown]
  - Application site pain [Unknown]
  - Application site discolouration [Not Recovered/Not Resolved]
  - Application site erythema [Recovered/Resolved]
  - Application site burn [Recovering/Resolving]
  - Application site pruritus [Unknown]
  - Application site discolouration [Unknown]
  - Application site scar [Recovering/Resolving]
  - Incorrect drug administration duration [Unknown]

NARRATIVE: CASE EVENT DATE: 20160610
